FAERS Safety Report 10765945 (Version 1)
Quarter: 2015Q1

REPORT INFORMATION
  Report Type: Spontaneous
  Country: US (occurrence: None)
  Receive Date: 20150204
  Receipt Date: 20150204
  Transmission Date: 20150721
  Serious: Yes (Disabling)
  Sender: FDA-Public Use
  Company Number: None

PATIENT
  Age: 60 Year
  Sex: Female
  Weight: 74.84 kg

DRUGS (1)
  1. PRILOSEC [Suspect]
     Active Substance: OMEPRAZOLE MAGNESIUM
     Indication: GASTROOESOPHAGEAL REFLUX DISEASE
     Dosage: 20 MG X 2 TWICE DAILY TAKEN BY MOUTH
     Route: 048
     Dates: start: 20150201, end: 20150202

REACTIONS (5)
  - Gastritis [None]
  - Dysplasia [None]
  - Malaise [None]
  - Gastric polypectomy [None]
  - Nausea [None]

NARRATIVE: CASE EVENT DATE: 20140616
